FAERS Safety Report 24414164 (Version 1)
Quarter: 2024Q4

REPORT INFORMATION
  Report Type: Report from Study
  Country: CA (occurrence: CA)
  Receive Date: 20241008
  Receipt Date: 20241008
  Transmission Date: 20250114
  Serious: Yes (Hospitalization)
  Sender: ABBVIE
  Company Number: CA-ABBVIE-5953864

PATIENT
  Age: 69 Year
  Sex: Female

DRUGS (2)
  1. RINVOQ [Suspect]
     Active Substance: UPADACITINIB
     Indication: Colitis ulcerative
     Route: 048
     Dates: start: 20240928, end: 20241001
  2. RINVOQ [Suspect]
     Active Substance: UPADACITINIB
     Indication: Colitis ulcerative
     Route: 048
     Dates: start: 20241005

REACTIONS (5)
  - Dizziness [Unknown]
  - Blood pressure decreased [Recovering/Resolving]
  - Chills [Recovered/Resolved]
  - Diarrhoea [Unknown]
  - Bacteraemia [Unknown]

NARRATIVE: CASE EVENT DATE: 20240101
